FAERS Safety Report 5425689-X (Version None)
Quarter: 2007Q3

REPORT INFORMATION
  Report Type: 
  Country: None (occurrence: None)
  Receive Date: 20070824
  Receipt Date: 20070812
  Transmission Date: 20080115
  Serious: Yes (Other)
  Sender: FDA-Public Use
  Company Number: US-PFIZER INC-2007068054

PATIENT
  Sex: Female
  Weight: 49 kg

DRUGS (8)
  1. CHANTIX [Suspect]
     Indication: SMOKING CESSATION THERAPY
  2. TEGRETOL [Concomitant]
  3. VALIUM [Concomitant]
  4. ROBAXIN [Concomitant]
  5. CYMBALTA [Concomitant]
  6. SYNTHROID [Concomitant]
  7. PREMARIN [Concomitant]
  8. VICODIN [Concomitant]

REACTIONS (2)
  - NERVOUSNESS [None]
  - PALPITATIONS [None]
